FAERS Safety Report 17123991 (Version 1)
Quarter: 2019Q4

REPORT INFORMATION
  Report Type: Spontaneous
  Country: US (occurrence: US)
  Receive Date: 20191206
  Receipt Date: 20191206
  Transmission Date: 20200122
  Serious: No
  Sender: FDA-Public Use
  Company Number: US-ROCHE-2379335

PATIENT
  Sex: Female

DRUGS (1)
  1. OCREVUS [Suspect]
     Active Substance: OCRELIZUMAB
     Indication: RELAPSING MULTIPLE SCLEROSIS
     Dosage: UNKNOWN
     Route: 042

REACTIONS (6)
  - Flushing [Unknown]
  - Erythema [Unknown]
  - Headache [Unknown]
  - Nausea [Unknown]
  - Infusion site pain [Not Recovered/Not Resolved]
  - Infusion site coldness [Unknown]

NARRATIVE: CASE EVENT DATE: 20190529
